FAERS Safety Report 5796185-5 (Version None)
Quarter: 2008Q3

REPORT INFORMATION
  Report Type: 
  Country: None (occurrence: None)
  Receive Date: 20080701
  Receipt Date: 20080616
  Transmission Date: 20090109
  Serious: Yes (Hospitalization)
  Sender: FDA-Public Use
  Company Number: CO-ELI_LILLY_AND_COMPANY-CO200806003976

PATIENT
  Sex: Female

DRUGS (3)
  1. BYETTA [Suspect]
     Indication: TYPE 2 DIABETES MELLITUS
     Dosage: 10 UG, 2/D
     Route: 058
  2. METFORMIN [Concomitant]
     Dosage: UNK UNK, UNKNOWN
     Route: 065
  3. GLIBENCLAMIDE [Concomitant]
     Dosage: UNK UNK, UNKNOWN
     Route: 065

REACTIONS (4)
  - HYPERGLYCAEMIA [None]
  - NAUSEA [None]
  - URINARY TRACT INFECTION [None]
  - WEIGHT DECREASED [None]
